FAERS Safety Report 4503661-1 (Version None)
Quarter: 2004Q3

REPORT INFORMATION
  Report Type: 
  Country: None (occurrence: None)
  Receive Date: 20040928
  Receipt Date: 20040611
  Transmission Date: 20050211
  Serious: No
  Sender: FDA-Public Use
  Company Number: 04P-163-0263574-00

PATIENT
  Age: 63 Year
  Sex: Female
  Weight: 65.7716 kg

DRUGS (8)
  1. HUMIRA [Suspect]
     Indication: RHEUMATOID ARTHRITIS
     Dosage: 40 MG, 1 IN 2 WK, SUBCUTANEOUS
     Route: 058
     Dates: start: 20040421
  2. ROFECOXIB [Concomitant]
  3. HYDROXYCHLOROQUINE PHOSPHATE [Concomitant]
  4. ESOMEPRAZOLE [Concomitant]
  5. CONJUGATED ESTROGEN [Concomitant]
  6. TRAMADOL HCL [Concomitant]
  7. RANITIDINE [Concomitant]
  8. PREDNISONE [Concomitant]

REACTIONS (3)
  - ASTHMA [None]
  - PLEURITIC PAIN [None]
  - RHEUMATOID ARTHRITIS [None]
